FAERS Safety Report 17456550 (Version 6)
Quarter: 2020Q2

REPORT INFORMATION
  Report Type: Spontaneous
  Country: US (occurrence: US)
  Receive Date: 20200225
  Receipt Date: 20200525
  Transmission Date: 20200713
  Serious: Yes (Other)
  Sender: FDA-Public Use
  Company Number: US-PFIZER INC-2020082232

PATIENT
  Age: 38 Year
  Sex: Female
  Weight: 86 kg

DRUGS (3)
  1. IBRANCE [Suspect]
     Active Substance: PALBOCICLIB
     Dosage: 125 MG, CYCLIC (WITH FOOD FOR 21 DAYS THEN BREAK FOR 7 DAYS
     Route: 048
     Dates: end: 20200317
  2. IBRANCE [Suspect]
     Active Substance: PALBOCICLIB
     Indication: BREAST CANCER FEMALE
     Dosage: 125 MG, CYCLIC (FOR 21 DAYS ON AND 7 DAYS OFF)
     Route: 048
     Dates: start: 20200120, end: 202002
  3. IBRANCE [Suspect]
     Active Substance: PALBOCICLIB
     Indication: METASTASES TO LUNG
     Dosage: 125 MG, CYCLIC (FOR 21 DAYS ON AND 7 DAYS OFF)
     Route: 048
     Dates: start: 20200217

REACTIONS (9)
  - Malaise [Unknown]
  - Bradykinesia [Unknown]
  - Arthralgia [Not Recovered/Not Resolved]
  - Headache [Unknown]
  - Joint swelling [Unknown]
  - Bone pain [Not Recovered/Not Resolved]
  - COVID-19 [Unknown]
  - Bone disorder [Not Recovered/Not Resolved]
  - Pain in extremity [Unknown]

NARRATIVE: CASE EVENT DATE: 2020
